FAERS Safety Report 19684721 (Version 3)
Quarter: 2021Q3

REPORT INFORMATION
  Report Type: Spontaneous
  Country: US (occurrence: US)
  Receive Date: 20210811
  Receipt Date: 20210927
  Transmission Date: 20211014
  Serious: No
  Sender: FDA-Public Use
  Company Number: US-AIMMUNE THERAPEUTICS, INC.-2021AIMT00486

PATIENT

DRUGS (3)
  1. PALFORZIA [Suspect]
     Active Substance: PEANUT
     Dosage: 6 MG, ONCE, LAST DOSE PRIOR EVENT VOMITING
     Route: 048
     Dates: start: 20210803, end: 20210803
  2. PALFORZIA [Suspect]
     Active Substance: PEANUT
     Indication: FOOD ALLERGY
     Dosage: 6 MG, 1X/DAY
     Route: 048
     Dates: start: 20210722, end: 20210803
  3. PALFORZIA [Suspect]
     Active Substance: PEANUT
     Dosage: 6 MG, ONCE, LAST DOSE PRIOR EVENT SPIT?UP
     Route: 048
     Dates: start: 20210801, end: 20210801

REACTIONS (3)
  - Regurgitation [Unknown]
  - Eosinophilic oesophagitis [Unknown]
  - Vomiting [Unknown]

NARRATIVE: CASE EVENT DATE: 20210801
